FAERS Safety Report 10513718 (Version 2)
Quarter: 2014Q4

REPORT INFORMATION
  Report Type: Spontaneous
  Country: US (occurrence: US)
  Receive Date: 20141013
  Receipt Date: 20141104
  Transmission Date: 20150528
  Serious: Yes (Hospitalization)
  Sender: FDA-Public Use
  Company Number: US-009507513-1410USA001574

PATIENT
  Age: 19 Year
  Sex: Female
  Weight: 74.38 kg

DRUGS (1)
  1. NEXPLANON [Suspect]
     Active Substance: ETONOGESTREL
     Indication: CONTRACEPTION
     Dosage: 1 NEXPLANON INJECTION
     Route: 059
     Dates: start: 20140916, end: 20140921

REACTIONS (5)
  - Implant site discharge [Recovered/Resolved]
  - Implant site infection [Recovered/Resolved]
  - Implant site swelling [Unknown]
  - Implant site pain [Unknown]
  - Device expulsion [Unknown]

NARRATIVE: CASE EVENT DATE: 2014
